FAERS Safety Report 13533669 (Version 11)
Quarter: 2018Q3

REPORT INFORMATION
  Report Type: Report from Study
  Country: US (occurrence: US)
  Receive Date: 20170510
  Receipt Date: 20180906
  Transmission Date: 20181010
  Serious: Yes (Other)
  Sender: FDA-Public Use
  Company Number: US-ACTELION-A-NJ2015-115216

PATIENT
  Age: 39 Year
  Sex: Female
  Weight: 90.25 kg

DRUGS (7)
  1. ADCIRCA [Concomitant]
     Active Substance: TADALAFIL
  2. TRACLEER [Suspect]
     Active Substance: BOSENTAN
     Dosage: 125 MG, BID
     Route: 048
  3. REMODULIN [Concomitant]
     Active Substance: TREPROSTINIL
  4. SILDENAFIL. [Concomitant]
     Active Substance: SILDENAFIL
  5. COUMADIN [Concomitant]
     Active Substance: WARFARIN SODIUM
  6. TRACLEER [Suspect]
     Active Substance: BOSENTAN
     Indication: PULMONARY ARTERIAL HYPERTENSION
     Dosage: 125 MG, BID
     Route: 048
     Dates: start: 20101202
  7. TRACLEER [Suspect]
     Active Substance: BOSENTAN
     Dosage: 125 MG, BID
     Route: 048

REACTIONS (31)
  - Catheter site pruritus [Unknown]
  - Catheter site pain [Unknown]
  - Pain in jaw [Unknown]
  - Catheter site inflammation [Unknown]
  - Application site odour [Unknown]
  - Infection [Not Recovered/Not Resolved]
  - Catheter site erythema [Unknown]
  - Pyrexia [Unknown]
  - Ear infection [Unknown]
  - Diarrhoea [Unknown]
  - Nasal congestion [Unknown]
  - Dental caries [Unknown]
  - Rhinorrhoea [Unknown]
  - Influenza [Unknown]
  - Vomiting [Unknown]
  - Bronchitis [Unknown]
  - Cholecystectomy [Unknown]
  - Catheter site discharge [Unknown]
  - Upper respiratory tract infection [Unknown]
  - Pneumonia [Unknown]
  - Sinusitis [Unknown]
  - Nausea [Unknown]
  - Wheezing [Unknown]
  - Ovarian cyst [Unknown]
  - Catheter site haemorrhage [Unknown]
  - Catheter management [Unknown]
  - Catheter site swelling [Unknown]
  - Nasopharyngitis [Unknown]
  - Cough [Unknown]
  - Chills [Unknown]
  - Headache [Unknown]

NARRATIVE: CASE EVENT DATE: 201503
